FAERS Safety Report 24172773 (Version 1)
Quarter: 2024Q3

REPORT INFORMATION
  Report Type: Spontaneous
  Country: US (occurrence: US)
  Receive Date: 20240805
  Receipt Date: 20240805
  Transmission Date: 20241017
  Serious: Yes (Hospitalization, Other)
  Sender: BRISTOL MYERS SQUIBB
  Company Number: US-BRISTOL-MYERS SQUIBB COMPANY-2024-121994

PATIENT
  Age: 86 Year
  Sex: Male
  Weight: 80.74 kg

DRUGS (3)
  1. ELIQUIS [Suspect]
     Active Substance: APIXABAN
     Indication: Atrial fibrillation
  2. ELIQUIS [Suspect]
     Active Substance: APIXABAN
     Indication: Atrial flutter
  3. VYNDAMAX [Suspect]
     Active Substance: TAFAMIDIS
     Indication: Product used for unknown indication
     Route: 048

REACTIONS (4)
  - Cardiac amyloidosis [Recovering/Resolving]
  - Heart failure with preserved ejection fraction [Recovering/Resolving]
  - Arteriosclerosis coronary artery [Unknown]
  - Pleural effusion [Unknown]

NARRATIVE: CASE EVENT DATE: 20240501
